FAERS Safety Report 6156510-2 (Version None)
Quarter: 2009Q2

REPORT INFORMATION
  Report Type: 
  Country: None (occurrence: None)
  Receive Date: 20090416
  Receipt Date: 20090410
  Transmission Date: 20091009
  Serious: Yes (Hospitalization)
  Sender: FDA-Public Use
  Company Number: US-B.I. PHARMACEUTICALS,INC./RIDGEFIELD-2009-BP-02418BP

PATIENT
  Age: 61 Year
  Sex: Male
  Weight: 86.2 kg

DRUGS (3)
  1. FLOMAX [Suspect]
     Indication: BENIGN PROSTATIC HYPERPLASIA
     Dosage: .4MG
     Dates: start: 20081212, end: 20081213
  2. BENICAR HCT [Concomitant]
  3. CALAN [Concomitant]
     Dosage: 360MG

REACTIONS (2)
  - BLOOD PRESSURE SYSTOLIC DECREASED [None]
  - SYNCOPE [None]
